FAERS Safety Report 17448525 (Version 5)
Quarter: 2021Q2

REPORT INFORMATION
  Report Type: Report from Study
  Country: None (occurrence: IL)
  Receive Date: 20200224
  Receipt Date: 20210618
  Transmission Date: 20210716
  Serious: Yes (Death, Hospitalization)
  Sender: FDA-Public Use
  Company Number: IL-ABBVIE-20K-082-3251517-00

PATIENT
  Age: 87 Year
  Sex: Female
  Weight: 68 kg

DRUGS (28)
  1. PLATELETS TRANSFUSION [Concomitant]
     Indication: PRODUCT USED FOR UNKNOWN INDICATION
     Dosage: 6 UNIT DOSE PER ADMINISTRATION
     Dates: start: 20200109
  2. PLATELETS TRANSFUSION [Concomitant]
     Dosage: 6 UNIT DOSE PER ADMINISTRATION
     Dates: start: 20200305
  3. PACKED RED BLOOD CELLS TRANSFUSION [Concomitant]
     Dosage: 1 UNIT DOSE PER ADMINISTRATION
     Dates: start: 20200131
  4. PACKED RED BLOOD CELLS TRANSFUSION [Concomitant]
     Dosage: 1 UNIT DOSE PER ADMINISTRATION
     Dates: start: 20200317
  5. CARDILOC [Concomitant]
     Active Substance: BISOPROLOL FUMARATE
     Indication: HYPERTENSION
  6. PLATELETS TRANSFUSION [Concomitant]
     Dosage: 6 UNIT DOSE PER ADMINISTRATION
     Dates: start: 20200317
  7. PACKED RED BLOOD CELLS TRANSFUSION [Concomitant]
     Dosage: 1 UNIT DOSE PER ADMINISTRATION
     Dates: start: 20200217
  8. PACKED RED BLOOD CELLS TRANSFUSION [Concomitant]
     Dosage: 1 UNIT DOSE PER ADMINISTRATION
     Dates: start: 20200303
  9. PACKED RED BLOOD CELLS TRANSFUSION [Concomitant]
     Dosage: 1 UNIT DOSE PER ADMINISTRATION
     Dates: start: 20200318
  10. VENCLEXTA [Suspect]
     Active Substance: VENETOCLAX
     Dosage: RAMP UP
     Route: 048
     Dates: start: 20191226, end: 20191226
  11. AZACITIDINE. [Suspect]
     Active Substance: AZACITIDINE
     Dosage: CYCLE 2
     Route: 058
     Dates: start: 20200127, end: 20200203
  12. VENCLEXTA [Suspect]
     Active Substance: VENETOCLAX
     Dosage: DISCONTINUATION?DEATH OF THE PATIENT
     Route: 048
     Dates: start: 20191227, end: 20200319
  13. PLATELETS TRANSFUSION [Concomitant]
     Dosage: 6 UNIT DOSE PER ADMINISTRATION
     Dates: start: 20200211
  14. PACKED RED BLOOD CELLS TRANSFUSION [Concomitant]
     Dosage: 1 UNIT DOSE PER ADMINISTRATION
     Dates: start: 20200204
  15. PACKED RED BLOOD CELLS TRANSFUSION [Concomitant]
     Dosage: 1 UNIT DOSE PER ADMINISTRATION
     Dates: start: 20200319
  16. VENCLEXTA [Suspect]
     Active Substance: VENETOCLAX
     Indication: ACUTE MYELOID LEUKAEMIA
     Dosage: RAMP UP
     Route: 048
     Dates: start: 20191225, end: 20191225
  17. ALLORIL [Concomitant]
     Active Substance: ALLOPURINOL
     Indication: PROPHYLAXIS
     Dates: start: 20191225
  18. PLATELETS TRANSFUSION [Concomitant]
     Dosage: 6 UNIT DOSE PER ADMINISTRATION
     Dates: start: 20200303
  19. PACKED RED BLOOD CELLS TRANSFUSION [Concomitant]
     Indication: PRODUCT USED FOR UNKNOWN INDICATION
     Dosage: 1 UNIT DOSE PER ADMINISTRATION
     Dates: start: 20200119
  20. PACKED RED BLOOD CELLS TRANSFUSION [Concomitant]
     Dosage: 1 UNIT DOSE PER ADMINISTRATION
     Dates: start: 20200215
  21. AZACITIDINE. [Suspect]
     Active Substance: AZACITIDINE
     Indication: ACUTE MYELOID LEUKAEMIA
     Dosage: CYCLE 1
     Route: 058
     Dates: start: 20191222, end: 20191231
  22. EPOETIN BETA [Concomitant]
     Active Substance: ERYTHROPOIETIN
     Indication: ANAEMIA
  23. AZACITIDINE. [Suspect]
     Active Substance: AZACITIDINE
     Dosage: CYCLE 3 OD
     Route: 058
     Dates: start: 20200301, end: 20200309
  24. HEXAKAPRON [Concomitant]
     Active Substance: TRANEXAMIC ACID
     Indication: PROCOAGULANT THERAPY
  25. FUSID [Concomitant]
     Indication: HYPERTENSION
  26. FOSTER [Concomitant]
     Active Substance: BECLOMETHASONE\FORMOTEROL
     Indication: ASTHMA
  27. AEROVENT [Concomitant]
     Indication: ASTHMA
  28. DECITABINE. [Suspect]
     Active Substance: DECITABINE
     Indication: ACUTE MYELOID LEUKAEMIA
     Route: 065

REACTIONS (6)
  - Non-cardiac chest pain [Recovered/Resolved]
  - Palpitations [Recovered/Resolved]
  - Vomiting [Recovered/Resolved]
  - Pancytopenia [Fatal]
  - Blood pressure diastolic decreased [Recovered/Resolved]
  - Asthenia [Not Recovered/Not Resolved]

NARRATIVE: CASE EVENT DATE: 20191226
